FAERS Safety Report 8395141-0 (Version None)
Quarter: 2012Q2

REPORT INFORMATION
  Report Type: 
  Country: None (occurrence: None)
  Receive Date: 20120530
  Receipt Date: 20120521
  Transmission Date: 20120825
  Serious: Yes (Hospitalization)
  Sender: FDA-Public Use
  Company Number: JP-ASTRAZENECA-2012SE32130

PATIENT
  Age: 24 Year
  Sex: Female

DRUGS (2)
  1. SYMBICORT [Suspect]
     Indication: ASTHMA
     Dosage: 2 PUFFS DAILY
     Route: 055
  2. OTHER AGENTS AFFECTING RESPIRATORY ORGANS [Concomitant]
     Indication: HYPERVENTILATION
     Route: 065

REACTIONS (2)
  - HYPOGLYCAEMIA [None]
  - ADRENAL INSUFFICIENCY [None]
